FAERS Safety Report 20587232 (Version 1)
Quarter: 2022Q1

REPORT INFORMATION
  Report Type: Spontaneous
  Country: US (occurrence: US)
  Receive Date: 20220314
  Receipt Date: 20220314
  Transmission Date: 20220424
  Serious: Yes (Life-Threatening, Hospitalization, Other)
  Sender: FDA-Public Use
  Company Number: US-CIPLA LTD.-2022US01578

PATIENT

DRUGS (1)
  1. WARFARIN [Suspect]
     Active Substance: WARFARIN
     Indication: Anticoagulant therapy
     Dosage: 7.5 MG EVERY DAY
     Route: 065

REACTIONS (3)
  - Upper airway obstruction [Unknown]
  - Haematoma [Unknown]
  - Anticoagulation drug level above therapeutic [Unknown]
